FAERS Safety Report 8723134 (Version 3)
Quarter: 2013Q3

REPORT INFORMATION
  Report Type: Report from Study
  Country: JP (occurrence: JP)
  Receive Date: 20120814
  Receipt Date: 20130823
  Transmission Date: 20140515
  Serious: Yes (Other)
  Sender: FDA-Public Use
  Company Number: JP-VERTEX PHARMACEUTICALS INC.-AE-2012-011984

PATIENT
  Age: 67 Year
  Sex: Female

DRUGS (12)
  1. VX-950 (TELAPREVIR) [Suspect]
     Indication: CHRONIC HEPATITIS C
     Dosage: 2250 MG, QD
     Route: 048
     Dates: start: 20120620, end: 20120621
  2. RIBAVIRIN [Suspect]
     Indication: CHRONIC HEPATITIS C
     Dosage: 600 MG, QD
     Route: 048
     Dates: start: 20120620, end: 20120621
  3. PEGINTERFERON ALFA-2B [Suspect]
     Indication: CHRONIC HEPATITIS C
     Dosage: 1.6 ?G/KG, QW
     Route: 058
     Dates: start: 20120620, end: 20120621
  4. URSODEOXYCHOLIC ACID [Concomitant]
     Dosage: 600 MG, QD
     Route: 048
     Dates: end: 20120621
  5. URSODEOXYCHOLIC ACID [Concomitant]
     Dosage: 600 MG, QD
     Route: 048
     Dates: start: 20120704
  6. BENIDIPINE HYDROCHLORIDE [Concomitant]
     Dosage: 2 MG, QD
     Route: 048
     Dates: end: 20120623
  7. FAMOTIDINE DCI [Concomitant]
     Dosage: 20 MG, QD
     Route: 048
     Dates: end: 20120623
  8. LIVALO [Concomitant]
     Dosage: 1 MG, QD
     Route: 048
     Dates: end: 20120622
  9. LENDORMIN D [Concomitant]
     Dosage: 0.25 MG, QD
     Route: 048
     Dates: start: 20120619, end: 20120629
  10. CONIEL [Concomitant]
     Dosage: 2 MG, QD
     Route: 048
     Dates: start: 20120704
  11. GASTER D [Concomitant]
     Dosage: 20 MG, QD
     Route: 048
     Dates: start: 20120704
  12. MYSLEE [Concomitant]
     Dosage: 10 MG, QD
     Route: 048
     Dates: start: 20120704

REACTIONS (1)
  - Renal impairment [Recovered/Resolved]
